FAERS Safety Report 10075579 (Version 1)
Quarter: 2014Q2

REPORT INFORMATION
  Report Type: Spontaneous
  Country: US (occurrence: None)
  Receive Date: 20140411
  Receipt Date: 20140411
  Transmission Date: 20141212
  Serious: Yes (Hospitalization)
  Sender: FDA-Public Use
  Company Number: None

PATIENT
  Age: 85 Year
  Sex: Male

DRUGS (9)
  1. ZYTIGA [Suspect]
     Indication: PRODUCT USED FOR UNKNOWN INDICATION
     Dosage: 1000 MG?DAILY?PO?3/20/2014-TEMP HOLD
     Route: 048
     Dates: start: 20140320
  2. AZILOCT [Concomitant]
  3. BICALUTIMDE [Concomitant]
  4. CARPIDOPA [Concomitant]
  5. CITALOPRAM [Concomitant]
  6. BYSTOLIC [Concomitant]
  7. GLIPIZIDE [Concomitant]
  8. TYLENOL ARTHIRITIS [Concomitant]
  9. PREDNISONE [Concomitant]

REACTIONS (1)
  - Investigation [None]
